FAERS Safety Report 7443900-0 (Version None)
Quarter: 2011Q2

REPORT INFORMATION
  Report Type: 
  Country: None (occurrence: None)
  Receive Date: 20110428
  Receipt Date: 20110418
  Transmission Date: 20111010
  Serious: Yes (Hospitalization)
  Sender: FDA-Public Use
  Company Number: DE-BAYER-2011-026210

PATIENT
  Age: 45 Year
  Sex: Female
  Weight: 68 kg

DRUGS (4)
  1. AVELOX [Suspect]
     Indication: PRODUCTIVE COUGH
     Dosage: UNK
     Route: 048
     Dates: start: 20110318, end: 20110319
  2. GABAPENTIN [Concomitant]
     Dosage: 600 MG, TID
  3. TILIDIN [Concomitant]
     Dosage: 100 MG, TID
     Dates: start: 20110204
  4. SIFROL [Concomitant]
     Dosage: 7 MG, QD

REACTIONS (25)
  - GAIT DISTURBANCE [None]
  - EYE IRRITATION [None]
  - DIZZINESS [None]
  - SPEECH DISORDER [None]
  - MOTOR DYSFUNCTION [None]
  - VOMITING [None]
  - DIPLOPIA [None]
  - RESTLESSNESS [None]
  - MUSCULOSKELETAL PAIN [None]
  - DYSGRAPHIA [None]
  - INTRAOCULAR PRESSURE TEST ABNORMAL [None]
  - LACRIMATION INCREASED [None]
  - COORDINATION ABNORMAL [None]
  - TACHYCARDIA [None]
  - TRISMUS [None]
  - HEADACHE [None]
  - NAUSEA [None]
  - DYSARTHRIA [None]
  - NECK PAIN [None]
  - EYE PAIN [None]
  - DYSPHEMIA [None]
  - VISION BLURRED [None]
  - PALPITATIONS [None]
  - MUSCLE TWITCHING [None]
  - ANXIETY [None]
